FAERS Safety Report 8607844-0 (Version None)
Quarter: 2012Q3

REPORT INFORMATION
  Report Type: 
  Country: None (occurrence: None)
  Receive Date: 20120821
  Receipt Date: 20120817
  Transmission Date: 20120928
  Serious: Yes (Death)
  Sender: FDA-Public Use
  Company Number: PHEH2012US016289

PATIENT
  Sex: Male

DRUGS (12)
  1. GLIMEPIRIDE [Concomitant]
  2. GABAPENTIN [Concomitant]
  3. GLEEVEC [Suspect]
     Indication: CHRONIC MYELOID LEUKAEMIA
     Dosage: 200 MG, DAILY
     Route: 048
     Dates: start: 20090821
  4. TOPROL-XL [Concomitant]
  5. SPIRONOLACTONE [Concomitant]
  6. PLAVIX [Concomitant]
  7. AMIODARONE HCL [Concomitant]
  8. WARFARIN SODIUM [Concomitant]
  9. FLOMAX [Concomitant]
  10. OMEPRAZOLE [Concomitant]
  11. CRESTOR [Concomitant]
  12. TORSEMIDE [Concomitant]

REACTIONS (1)
  - DEATH [None]
